FAERS Safety Report 14534405 (Version 2)
Quarter: 2018Q1

REPORT INFORMATION
  Report Type: Spontaneous
  Country: BR (occurrence: BR)
  Receive Date: 20180215
  Receipt Date: 20180319
  Transmission Date: 20180509
  Serious: Yes (Hospitalization)
  Sender: FDA-Public Use
  Company Number: BR-ABBVIE-18P-020-2255136-00

PATIENT
  Age: 38 Year
  Sex: Female

DRUGS (7)
  1. ALLESTRA [Concomitant]
     Active Substance: ETHINYL ESTRADIOL\GESTODENE
     Indication: HORMONE REPLACEMENT THERAPY
     Dosage: ADMINISTERED AT 6PM SINCE ALMOST 4 MONTHS AGO
     Route: 048
  2. PARACETAMOL [Concomitant]
     Active Substance: ACETAMINOPHEN
     Indication: MIGRAINE
     Dosage: ADMINISTERED WITH WATER - WHEN NECESSARY
     Route: 048
  3. RIVOTRIL [Concomitant]
     Active Substance: CLONAZEPAM
     Indication: DEPRESSION
  4. NEOSALDINA [Concomitant]
     Active Substance: CAFFEINE\ISOMETHEPTENE\METHIMAZOLE
     Indication: MIGRAINE
     Dosage: MORNING/NIGHT
     Route: 048
  5. DEPAKOTE ER [Suspect]
     Active Substance: DIVALPROEX SODIUM
     Indication: BIPOLAR DISORDER
     Dosage: SINCE 8 MONTHS AGO - ADMINISTERD AT NIGHT
     Route: 048
  6. PARACETAMOL [Concomitant]
     Active Substance: ACETAMINOPHEN
     Indication: HEADACHE
  7. RIVOTRIL [Concomitant]
     Active Substance: CLONAZEPAM
     Indication: INSOMNIA
     Dosage: ADMINUSTERED AT NIGHT - HALF TABLET OR 1 TABLET
     Route: 048
     Dates: start: 2003

REACTIONS (13)
  - Tongue disorder [Recovered/Resolved]
  - Pain in extremity [Recovering/Resolving]
  - Wrong technique in product usage process [Unknown]
  - Weight increased [Not Recovered/Not Resolved]
  - Peripheral swelling [Recovering/Resolving]
  - Syncope [Recovered/Resolved]
  - Therapy cessation [Unknown]
  - Psychotic disorder [Recovered/Resolved]
  - Seizure [Unknown]
  - Binge eating [Not Recovered/Not Resolved]
  - Somnolence [Recovering/Resolving]
  - Dizziness [Recovering/Resolving]
  - Dyspnoea [Recovered/Resolved]

NARRATIVE: CASE EVENT DATE: 201711
